FAERS Safety Report 20459738 (Version 1)
Quarter: 2022Q1

REPORT INFORMATION
  Report Type: Other
  Country: CN (occurrence: None)
  Receive Date: 20220211
  Receipt Date: 20220211
  Transmission Date: 20220423
  Serious: Yes (Death)
  Sender: FDA-Public Use
  Company Number: CN-ROCHE-3015967

PATIENT
  Age: 63 Year
  Sex: Male

DRUGS (1)
  1. ALTEPLASE [Suspect]
     Active Substance: ALTEPLASE
     Indication: Thrombolysis
     Route: 040

REACTIONS (4)
  - Arterial rupture [Fatal]
  - Aortic dissection [Fatal]
  - Haematoma [Fatal]
  - Contraindicated product administered [Fatal]
